FAERS Safety Report 20093497 (Version 3)
Quarter: 2022Q1

REPORT INFORMATION
  Report Type: Spontaneous
  Country: US (occurrence: US)
  Receive Date: 20211121
  Receipt Date: 20220222
  Transmission Date: 20220423
  Serious: No
  Sender: FDA-Public Use
  Company Number: US-SA-SAC20211117001455

PATIENT
  Age: 64 Year
  Sex: Female

DRUGS (3)
  1. AUBAGIO [Suspect]
     Active Substance: TERIFLUNOMIDE
     Indication: Multiple sclerosis
     Dosage: 7 MG, QD
     Route: 048
     Dates: start: 20210722
  2. DALFAMPRIDINE [Concomitant]
     Active Substance: DALFAMPRIDINE
  3. BACLOFEN [Concomitant]
     Active Substance: BACLOFEN

REACTIONS (3)
  - Lethargy [Unknown]
  - Alopecia [Unknown]
  - Drug ineffective [Unknown]
